FAERS Safety Report 4496786-0 (Version None)
Quarter: 2004Q4

REPORT INFORMATION
  Report Type: 
  Country: None (occurrence: None)
  Receive Date: 20041109
  Receipt Date: 20041102
  Transmission Date: 20050328
  Serious: Yes (Life-Threatening, Hospitalization)
  Sender: FDA-Public Use
  Company Number: US-MERCK-0411USA00400

PATIENT
  Age: 81 Year
  Sex: Female

DRUGS (1)
  1. VIOXX [Suspect]
     Indication: ARTHRITIS
     Route: 048
     Dates: start: 20000101, end: 20040101

REACTIONS (6)
  - ARRHYTHMIA [None]
  - ASTHENIA [None]
  - EATING DISORDER [None]
  - IRRITABILITY [None]
  - NERVOUSNESS [None]
  - OCULAR NEOPLASM [None]
